FAERS Safety Report 10246789 (Version 2)
Quarter: 2014Q2

REPORT INFORMATION
  Report Type: Spontaneous
  Country: JP (occurrence: JP)
  Receive Date: 20140619
  Receipt Date: 20140619
  Transmission Date: 20141212
  Serious: Yes (Hospitalization)
  Sender: FDA-Public Use
  Company Number: PHHY2014JP061282

PATIENT
  Age: 70 Year
  Sex: Male

DRUGS (9)
  1. NEORAL [Suspect]
     Indication: INTERSTITIAL LUNG DISEASE
     Dosage: 150 MG, QD
     Route: 048
     Dates: start: 20140317
  2. NEORAL [Suspect]
     Indication: OFF LABEL USE
     Dosage: 120 MG, QD
     Route: 048
     Dates: start: 20140401
  3. NEORAL [Suspect]
     Dosage: 100 MG, QD
     Route: 048
     Dates: start: 20140501
  4. NEORAL [Suspect]
     Dosage: 50 MG, QD
     Route: 048
     Dates: start: 20140529
  5. VORICONAZOLE [Suspect]
     Dosage: 300 MG, DAILY
     Route: 048
     Dates: end: 20140528
  6. VORICONAZOLE [Suspect]
     Dosage: 200 MG, DAILY
     Route: 048
  7. SULFAMETHOXAZOLE AND TRIMETHOPRIM [Concomitant]
     Indication: INTERSTITIAL LUNG DISEASE
     Dosage: UNK UKN, UNK
  8. MICAFUNGIN SODIUM [Concomitant]
     Dosage: UNK UKN, UNK
     Dates: start: 20140509, end: 20140515
  9. CORTICOSTEROIDS [Concomitant]
     Dosage: UNK UKN, UNK

REACTIONS (3)
  - Interstitial lung disease [Recovered/Resolved]
  - Drug interaction [Unknown]
  - Immunosuppressant drug level increased [Recovered/Resolved]
